FAERS Safety Report 20605703 (Version 1)
Quarter: 2022Q1

REPORT INFORMATION
  Report Type: Spontaneous
  Country: PT (occurrence: PT)
  Receive Date: 20220317
  Receipt Date: 20220317
  Transmission Date: 20220423
  Serious: Yes (Hospitalization, Other)
  Sender: FDA-Public Use
  Company Number: PT-KERNPHARMA-20190089

PATIENT
  Age: 69 Year
  Sex: Female

DRUGS (2)
  1. IMATINIB MESYLATE [Suspect]
     Active Substance: IMATINIB MESYLATE
     Indication: Philadelphia chromosome positive
     Dosage: 600 MILLIGRAM, ONCE A DAY
     Route: 065
  2. IMATINIB MESYLATE [Suspect]
     Active Substance: IMATINIB MESYLATE
     Indication: B-cell type acute leukaemia

REACTIONS (11)
  - Nausea [Recovered/Resolved]
  - Odynophagia [Recovered/Resolved]
  - Constipation [Recovered/Resolved]
  - Dysphagia [Recovered/Resolved]
  - Pneumatosis intestinalis [Recovered/Resolved]
  - Pain [Recovering/Resolving]
  - Emphysema [Recovering/Resolving]
  - Abdominal pain [Unknown]
  - Abdominal distension [Recovering/Resolving]
  - Vomiting [Recovering/Resolving]
  - Neck pain [Unknown]
